FAERS Safety Report 7916805-6 (Version None)
Quarter: 2011Q4

REPORT INFORMATION
  Report Type: 
  Country: None (occurrence: None)
  Receive Date: 20111114
  Receipt Date: 20111107
  Transmission Date: 20120403
  Serious: Yes (Other)
  Sender: FDA-Public Use
  Company Number: AUR-APL-2010-03116

PATIENT
  Age: 73 Year
  Sex: Male
  Weight: 77.9 kg

DRUGS (6)
  1. RAMIPRIL [Concomitant]
  2. REMENYL (GALANTAMINE) [Concomitant]
  3. TERBINAFINE HCL [Suspect]
     Indication: FUNGAL INFECTION
     Dosage: 250 MG (250 MG, 1 IN 1 D), ORAL
     Route: 048
     Dates: start: 20100801, end: 20100908
  4. ACC-001 (ACC-011, QS-21) [Concomitant]
     Indication: DEMENTIA ALZHEIMER'S TYPE
     Dosage: 3 UG/ML + QS 21 50
     Dates: start: 20091214, end: 20091214
  5. ACC-001 (ACC-011, QS-21) [Concomitant]
     Indication: DEMENTIA ALZHEIMER'S TYPE
     Dosage: 3 UG/ML + QS 21 50
     Dates: start: 20100616, end: 20100616
  6. RISPERIDONE [Concomitant]

REACTIONS (7)
  - RASH GENERALISED [None]
  - CYANOSIS [None]
  - SKIN HAEMORRHAGE [None]
  - SKIN FISSURES [None]
  - PETECHIAE [None]
  - RAYNAUD'S PHENOMENON [None]
  - SKIN EXFOLIATION [None]
